FAERS Safety Report 22200011 (Version 2)
Quarter: 2023Q4

REPORT INFORMATION
  Report Type: Spontaneous
  Country: AR (occurrence: AR)
  Receive Date: 20230412
  Receipt Date: 20231109
  Transmission Date: 20240110
  Serious: Yes (Hospitalization, Other)
  Sender: FDA-Public Use
  Company Number: AR-SA-SAC20230411000622

PATIENT

DRUGS (1)
  1. LEMTRADA [Suspect]
     Active Substance: ALEMTUZUMAB
     Dosage: UNK
     Route: 064
     Dates: start: 202002, end: 202002

REACTIONS (4)
  - Oesophageal atresia [Unknown]
  - Trisomy 21 [Unknown]
  - Premature baby [Unknown]
  - Foetal exposure during pregnancy [Unknown]
